FAERS Safety Report 11111834 (Version 1)
Quarter: 2015Q2

REPORT INFORMATION
  Report Type: Spontaneous
  Country: US (occurrence: None)
  Receive Date: 20150512
  Receipt Date: 20150512
  Transmission Date: 20150821
  Serious: Yes (Disabling)
  Sender: FDA-Public Use
  Company Number: None

PATIENT
  Age: 28 Year
  Sex: Female
  Weight: 63.5 kg

DRUGS (8)
  1. LEVAQUIN [Suspect]
     Active Substance: LEVOFLOXACIN
     Indication: BRONCHITIS
     Dosage: FOR 5 DAYS TAKEN BY MOUTH
     Route: 048
     Dates: start: 20140824, end: 20140828
  2. CALCIUM [Concomitant]
     Active Substance: CALCIUM
  3. PROBIOTICS [Concomitant]
     Active Substance: PROBIOTICS NOS
  4. LEVAQUIN [Suspect]
     Active Substance: LEVOFLOXACIN
     Indication: SINUSITIS
     Dosage: FOR 5 DAYS TAKEN BY MOUTH
     Route: 048
     Dates: start: 20140824, end: 20140828
  5. KLONOPIN [Concomitant]
     Active Substance: CLONAZEPAM
  6. LEVAQUIN [Suspect]
     Active Substance: LEVOFLOXACIN
     Indication: PNEUMONIA
     Dosage: FOR 5 DAYS TAKEN BY MOUTH
     Route: 048
     Dates: start: 20140824, end: 20140828
  7. MULTIVITAMIN [Concomitant]
     Active Substance: VITAMINS
  8. MAGNESIUM [Concomitant]
     Active Substance: MAGNESIUM

REACTIONS (23)
  - Irritability [None]
  - Epicondylitis [None]
  - Muscle tightness [None]
  - Joint range of motion decreased [None]
  - Joint crepitation [None]
  - Hypoaesthesia [None]
  - Muscular weakness [None]
  - Paraesthesia [None]
  - Burning sensation [None]
  - Amnesia [None]
  - Impaired work ability [None]
  - Tinnitus [None]
  - Insomnia [None]
  - Tendonitis [None]
  - Neck pain [None]
  - Personality change [None]
  - Rash [None]
  - Arthralgia [None]
  - Headache [None]
  - Paranoia [None]
  - Palpitations [None]
  - Anxiety [None]
  - Back pain [None]

NARRATIVE: CASE EVENT DATE: 20140824
